FAERS Safety Report 9362858 (Version 1)
Quarter: 2013Q2

REPORT INFORMATION
  Report Type: Spontaneous
  Country: US (occurrence: None)
  Receive Date: 20130621
  Receipt Date: 20130621
  Transmission Date: 20140414
  Serious: Yes (Death)
  Sender: FDA-Public Use
  Company Number: None

PATIENT
  Age: 92 Year
  Sex: Female

DRUGS (2)
  1. AVASTIN [Suspect]
     Indication: AGE-RELATED MACULAR DEGENERATION
     Dosage: 1, EVERY 6 WEEKS, INTRAOCULAR
     Route: 031
     Dates: start: 20110802, end: 20120921
  2. EYLEA 2 MG REGENERON [Suspect]
     Indication: AGE-RELATED MACULAR DEGENERATION
     Dosage: 1, EVERY 4 WEEKS, INTRAOCULAR
     Route: 031
     Dates: start: 20121024, end: 20130104

REACTIONS (1)
  - Death [None]
